FAERS Safety Report 9198694 (Version 3)
Quarter: 2013Q2

REPORT INFORMATION
  Report Type: Spontaneous
  Country: US (occurrence: US)
  Receive Date: 20130329
  Receipt Date: 20130625
  Transmission Date: 20140414
  Serious: Yes (Other)
  Sender: FDA-Public Use
  Company Number: US-PFIZER INC-2013100958

PATIENT
  Age: 61 Year
  Sex: Female
  Weight: 126 kg

DRUGS (7)
  1. EFFEXOR [Suspect]
     Indication: BIPOLAR I DISORDER
     Dosage: 75 MG, 2X/DAY
     Route: 048
     Dates: start: 2012
  2. EFFEXOR [Suspect]
     Indication: DEPRESSION
     Dosage: 75 MG, 3X/DAY
  3. EFFEXOR [Suspect]
     Dosage: UNK
  4. LYRICA [Suspect]
     Indication: FIBROMYALGIA
     Dosage: 75 MG, 2X/DAY
     Route: 048
  5. CLONAZEPAM [Concomitant]
     Indication: RESTLESS LEGS SYNDROME
     Dosage: UNK
  6. ADVAIR [Concomitant]
     Dosage: UNK
  7. VENTOLIN [Concomitant]
     Dosage: UNK

REACTIONS (3)
  - Appendix disorder [Unknown]
  - Post procedural complication [Unknown]
  - Drug effect decreased [Unknown]
